FAERS Safety Report 18635859 (Version 1)
Quarter: 2020Q4

REPORT INFORMATION
  Report Type: Report from Study
  Country: MX (occurrence: MX)
  Receive Date: 20201218
  Receipt Date: 20201218
  Transmission Date: 20210114
  Serious: Yes (Other)
  Sender: FDA-Public Use
  Company Number: PHHY2018MX035370

PATIENT
  Age: 65 Year
  Sex: Female
  Weight: 65 kg

DRUGS (14)
  1. ENTRESTO [Suspect]
     Active Substance: SACUBITRIL\VALSARTAN
     Indication: HYPERTENSION
     Dosage: 0.5 DF (100 MG), BID (IN THE MORNING AND AT NIGHT)
     Route: 048
     Dates: start: 201609
  2. FUROSEMIDE. [Concomitant]
     Active Substance: FUROSEMIDE
     Indication: FLUID RETENTION
     Dosage: 1 DF, QD (STARTED HALF YEAR AGO)
     Route: 048
  3. MINITRAN [Concomitant]
     Active Substance: NITROGLYCERIN
     Indication: CARDIAC DISORDER
     Dosage: 1 DF, QD (STARTED HALF YEAR AGO)
     Route: 048
  4. INSULIN [Concomitant]
     Active Substance: INSULIN NOS
     Indication: DIABETES MELLITUS
     Dosage: 15 IU, QD (STARTED 20 YEARS AGO)
     Route: 062
  5. LOSARTAN. [Concomitant]
     Active Substance: LOSARTAN
     Indication: HYPERTENSION
     Dosage: 1 DF, QD (STARTED 15 YEARS AGO AND STOPPED HALF YEAR AGO)
     Route: 048
  6. ENTRESTO [Suspect]
     Active Substance: SACUBITRIL\VALSARTAN
     Indication: MITRAL VALVE STENOSIS
     Dosage: 0.5 DF (100 MG), BID
     Route: 048
  7. DAFLON [Concomitant]
     Indication: FLUID RETENTION
     Dosage: 1 DF, QD (STARTED HALF YEAR AGO)
     Route: 048
  8. ASPIRIN. [Concomitant]
     Active Substance: ASPIRIN
     Indication: CARDIAC DISORDER
     Dosage: 1 DF, QD (STARTED HALF YEAR AGO)
     Route: 048
  9. ARCALION [Concomitant]
     Active Substance: SULBUTIAMINE
     Indication: VITAMIN SUPPLEMENTATION
     Dosage: 2 DF, QD (STARTED HALF YEAR AGO)
     Route: 048
  10. PRADAXAR [Concomitant]
     Active Substance: DABIGATRAN ETEXILATE MESYLATE
     Indication: THROMBOSIS PROPHYLAXIS
     Dosage: 1 DF (110 MG), QD
     Route: 048
     Dates: start: 201609
  11. BETAISTINA [Concomitant]
     Active Substance: BETAHISTINE HYDROCHLORIDE
     Indication: PRODUCT USED FOR UNKNOWN INDICATION
     Dosage: 2 DF, QD (STARTED HALF YEAR AGO)
     Route: 048
  12. DIFENIDOL [Concomitant]
     Active Substance: DIPHENIDOL
     Indication: VOMITING
  13. VALVULAN [Concomitant]
     Indication: ARRHYTHMIA
     Dosage: 0.5 DF, QD (MONDAY TO FRIDAY) (STARTED HALF YEAR AGO)
     Route: 048
  14. DIFENIDOL [Concomitant]
     Active Substance: DIPHENIDOL
     Indication: DIZZINESS
     Dosage: 1 DF, QD (STARTED HALF YEAR AGO)
     Route: 048

REACTIONS (4)
  - Product prescribing error [Unknown]
  - Wrong technique in product usage process [Unknown]
  - Cerebrovascular accident [Unknown]
  - Paralysis [Not Recovered/Not Resolved]

NARRATIVE: CASE EVENT DATE: 201609
